FAERS Safety Report 10173339 (Version 1)
Quarter: 2014Q2

REPORT INFORMATION
  Report Type: Spontaneous
  Country: US (occurrence: None)
  Receive Date: 20140514
  Receipt Date: 20140514
  Transmission Date: 20141212
  Serious: Yes (Other)
  Sender: FDA-Public Use
  Company Number: None

PATIENT
  Sex: 0

DRUGS (1)
  1. MORPHINE [Suspect]
     Dosage: 4 MG, INTRAVENOUS?
     Route: 042
     Dates: start: 20140504, end: 20140511

REACTIONS (3)
  - Injection site streaking [None]
  - Pruritus [None]
  - Product quality issue [None]
